FAERS Safety Report 8927234 (Version 2)
Quarter: 2013Q2

REPORT INFORMATION
  Report Type: Spontaneous
  Country: AU (occurrence: AU)
  Receive Date: 20121127
  Receipt Date: 20130625
  Transmission Date: 20140414
  Serious: Yes (Other)
  Sender: FDA-Public Use
  Company Number: AU-ROCHE-1157719

PATIENT
  Age: 34 Year
  Sex: Male

DRUGS (3)
  1. ORLISTAT [Suspect]
     Indication: OBESITY
     Dosage: 3 TABLETS PER DAY, FIRST 3 MONTHS
     Route: 048
     Dates: start: 201009
  2. ORLISTAT [Interacting]
     Dosage: AT EVENING
     Route: 048
  3. ATRIPLA [Interacting]
     Indication: OBESITY
     Route: 065
     Dates: start: 200902

REACTIONS (2)
  - Viraemia [Recovered/Resolved]
  - Drug interaction [Unknown]
